FAERS Safety Report 10635984 (Version 1)
Quarter: 2014Q4

REPORT INFORMATION
  Report Type: Spontaneous
  Country: US (occurrence: US)
  Receive Date: 20141205
  Receipt Date: 20141205
  Transmission Date: 20150529
  Serious: No
  Sender: FDA-Public Use
  Company Number: US-TEVA-526452USA

PATIENT
  Sex: Female
  Weight: 86.26 kg

DRUGS (1)
  1. SYNRIBO [Suspect]
     Active Substance: OMACETAXINE MEPESUCCINATE
     Indication: LEUKAEMIA

REACTIONS (3)
  - Injection site scab [Not Recovered/Not Resolved]
  - Injection site pain [Not Recovered/Not Resolved]
  - Tinea infection [Recovered/Resolved]
